FAERS Safety Report 8368123-2 (Version None)
Quarter: 2012Q2

REPORT INFORMATION
  Report Type: 
  Country: None (occurrence: None)
  Receive Date: 20120517
  Receipt Date: 20110701
  Transmission Date: 20120825
  Serious: Yes (Life-Threatening, Hospitalization)
  Sender: FDA-Public Use
  Company Number: DK-ELI_LILLY_AND_COMPANY-DK201107000509

PATIENT
  Sex: Female
  Weight: 75 kg

DRUGS (3)
  1. ASPIRIN [Concomitant]
     Indication: ARTERIAL STENT INSERTION
     Dosage: UNK
     Route: 065
     Dates: start: 20110118
  2. EFFIENT [Suspect]
     Indication: ARTERIAL STENT INSERTION
     Dosage: 10 MG, QD
     Route: 048
     Dates: start: 20110118
  3. MAGNYL [Concomitant]

REACTIONS (1)
  - SUBDURAL HAEMATOMA [None]
